FAERS Safety Report 9395438 (Version 1)
Quarter: 2013Q3

REPORT INFORMATION
  Report Type: Spontaneous
  Country: US (occurrence: US)
  Receive Date: 20130711
  Receipt Date: 20130711
  Transmission Date: 20140515
  Serious: Yes (Other)
  Sender: FDA-Public Use
  Company Number: US-UCBSA-091041

PATIENT
  Age: 43 Year
  Sex: Male
  Weight: 86.1 kg

DRUGS (2)
  1. CIMZIA [Suspect]
     Indication: CROHN^S DISEASE
     Dates: start: 20110415
  2. ANDROGEL [Concomitant]

REACTIONS (1)
  - Aortic stenosis [Unknown]
